FAERS Safety Report 24572199 (Version 2)
Quarter: 2024Q4

REPORT INFORMATION
  Report Type: Spontaneous
  Country: GR (occurrence: GR)
  Receive Date: 20241101
  Receipt Date: 20241114
  Transmission Date: 20250114
  Serious: Yes (Life-Threatening, Hospitalization, Other)
  Sender: PFIZER
  Company Number: GR-MLMSERVICE-20241017-PI230228-00202-1

PATIENT
  Age: 48 Year
  Sex: Female

DRUGS (7)
  1. LINEZOLID [Suspect]
     Active Substance: LINEZOLID
     Indication: Pulmonary tuberculosis
     Dosage: 600 MG, ONCE A DAY
     Route: 048
     Dates: start: 202211
  2. PRETOMANID [Suspect]
     Active Substance: PRETOMANID
     Indication: Pulmonary tuberculosis
     Dosage: 200 MG, ONCE A DAY
     Route: 048
     Dates: start: 202211
  3. BEDAQUILINE [Suspect]
     Active Substance: BEDAQUILINE
     Indication: Pulmonary tuberculosis
     Dosage: 400 MG, ONCE A DAY FOR TWO WEEKS
     Route: 048
     Dates: start: 202211, end: 2022
  4. BEDAQUILINE [Suspect]
     Active Substance: BEDAQUILINE
     Dosage: 200 MG, 3 TIMES PER WEEK
     Route: 048
     Dates: start: 202211
  5. CYCLOSERINE [Suspect]
     Active Substance: CYCLOSERINE
     Indication: Pulmonary tuberculosis
     Dosage: 250 MG, TWICE A DAY FOR TWO WEEKS
     Route: 048
     Dates: start: 202211, end: 2022
  6. CYCLOSERINE [Suspect]
     Active Substance: CYCLOSERINE
     Dosage: 500 MG, TWICE A DAY
     Route: 048
     Dates: start: 202211
  7. AMIKACIN [Suspect]
     Active Substance: AMIKACIN
     Indication: Pulmonary tuberculosis
     Dosage: 750 MG, ONCE A DAY
     Route: 048
     Dates: start: 202211

REACTIONS (1)
  - Myocarditis [Recovered/Resolved]
